FAERS Safety Report 8050460-2 (Version None)
Quarter: 2012Q1

REPORT INFORMATION
  Report Type: 
  Country: None (occurrence: None)
  Receive Date: 20120117
  Receipt Date: 20120117
  Transmission Date: 20120608
  Serious: Yes (Hospitalization)
  Sender: FDA-Public Use
  Company Number: CA-JNJFOC-20110400499

PATIENT
  Sex: Female
  Weight: 119 kg

DRUGS (21)
  1. CITALOPRAM HYDROBROMIDE [Concomitant]
     Route: 048
     Dates: start: 20000101
  2. RABEPRAZOLE SODIUM [Concomitant]
     Route: 048
     Dates: start: 20000101
  3. BICARBONATE [Concomitant]
     Route: 048
     Dates: start: 20081111
  4. ALPRAZOLAM [Concomitant]
     Route: 048
     Dates: start: 19900101
  5. GOLIMUMAB [Suspect]
     Indication: PSORIATIC ARTHROPATHY
     Route: 058
     Dates: start: 20060517
  6. OMEPRAZOLE [Concomitant]
     Route: 048
     Dates: start: 20071217
  7. MAGNESIUM HYDROXIDE TAB [Concomitant]
     Route: 048
     Dates: start: 20081110
  8. AMITRIPTYLINE HCL [Concomitant]
     Route: 048
     Dates: start: 19900101
  9. NITRO-DUR [Concomitant]
     Route: 061
     Dates: start: 20000101
  10. PREVACID [Concomitant]
     Route: 048
     Dates: start: 20070814
  11. APO-GLICLAZIDE [Concomitant]
     Route: 048
     Dates: start: 20091124
  12. CYCLOBENZAPRINE [Concomitant]
     Route: 048
     Dates: start: 20000101
  13. METFORMIN HCL [Concomitant]
     Route: 048
     Dates: start: 20030101
  14. ENTERIC COATED ACETYLSALICYLIC ACID [Concomitant]
     Route: 048
     Dates: start: 20040101
  15. CRESTOR [Concomitant]
     Route: 048
     Dates: start: 20070130
  16. GOLIMUMAB [Suspect]
     Route: 058
     Dates: start: 20110119
  17. RANITIDINE [Concomitant]
     Route: 048
     Dates: start: 20071129
  18. MICARDIS [Concomitant]
     Route: 048
     Dates: start: 20100420
  19. ALBUTEROL SULFATE AUTOHALER [Concomitant]
     Route: 055
     Dates: start: 19960101
  20. PRILOSEC [Concomitant]
     Route: 048
     Dates: start: 20071202
  21. TYLENOL W/ CODEINE [Concomitant]
     Route: 048
     Dates: start: 20100705

REACTIONS (1)
  - PNEUMONIA [None]
